FAERS Safety Report 20233750 (Version 7)
Quarter: 2022Q4

REPORT INFORMATION
  Report Type: Spontaneous
  Country: US (occurrence: US)
  Receive Date: 20211227
  Receipt Date: 20221222
  Transmission Date: 20230113
  Serious: No
  Sender: FDA-Public Use
  Company Number: US-SA-SAC20211224000449

PATIENT
  Age: 74 Year
  Sex: Female

DRUGS (3)
  1. CERDELGA [Suspect]
     Active Substance: ELIGLUSTAT
     Indication: Gaucher^s disease type I
     Dosage: 84 MG, BID
     Route: 058
     Dates: start: 20160119
  2. RISEDRONATE SODIUM [Concomitant]
     Active Substance: RISEDRONATE SODIUM
     Indication: Osteoporosis
     Dosage: 150 MG
     Route: 048
     Dates: start: 20201123
  3. DYAZIDE [Concomitant]
     Active Substance: HYDROCHLOROTHIAZIDE\TRIAMTERENE
     Indication: Hypertriglyceridaemia
     Dosage: 375/25, QD
     Route: 048
     Dates: start: 20150909

REACTIONS (7)
  - Lactose intolerance [Unknown]
  - Coronavirus infection [Not Recovered/Not Resolved]
  - Weight decreased [Unknown]
  - Diarrhoea [Unknown]
  - Intentional dose omission [Unknown]
  - Incorrect route of product administration [Unknown]
  - Product dose omission in error [Unknown]

NARRATIVE: CASE EVENT DATE: 20160119
